FAERS Safety Report 5447243-6 (Version None)
Quarter: 2007Q3

REPORT INFORMATION
  Report Type: 
  Country: None (occurrence: None)
  Receive Date: 20070910
  Receipt Date: 20070904
  Transmission Date: 20080115
  Serious: Yes (Hospitalization)
  Sender: FDA-Public Use
  Company Number: US-ASTRAZENECA-2007UW20886

PATIENT
  Age: 83 Year
  Sex: Female
  Weight: 86.2 kg

DRUGS (4)
  1. ZESTRIL [Suspect]
     Route: 048
  2. TRICOLOR [Concomitant]
  3. SYNTHROID [Concomitant]
  4. QUININE [Concomitant]

REACTIONS (3)
  - BLADDER PROLAPSE [None]
  - BLOOD POTASSIUM INCREASED [None]
  - URINARY RETENTION [None]
